FAERS Safety Report 8607296 (Version 3)
Quarter: 2014Q1

REPORT INFORMATION
  Report Type: Spontaneous
  Country: US (occurrence: US)
  Receive Date: 20120611
  Receipt Date: 20140131
  Transmission Date: 20141002
  Serious: Yes (Disabling, Other)
  Sender: FDA-Public Use
  Company Number: US-ASTRAZENECA-2012SE35934

PATIENT
  Age: 35 Year
  Sex: Female
  Weight: 111.1 kg

DRUGS (27)
  1. NEXIUM [Suspect]
     Indication: GASTROOESOPHAGEAL REFLUX DISEASE
     Route: 048
  2. NEXIUM [Suspect]
     Indication: GASTROOESOPHAGEAL REFLUX DISEASE
     Route: 048
  3. NEXIUM [Suspect]
     Indication: OESOPHAGEAL DISORDER
     Route: 048
  4. NEXIUM [Suspect]
     Indication: HIATUS HERNIA
     Route: 048
  5. NEXIUM [Suspect]
     Indication: GASTROOESOPHAGEAL REFLUX DISEASE
     Route: 048
     Dates: start: 2002, end: 201206
  6. NEXIUM [Suspect]
     Indication: GASTROOESOPHAGEAL REFLUX DISEASE
     Route: 048
     Dates: start: 2002, end: 201206
  7. NEXIUM [Suspect]
     Indication: OESOPHAGEAL DISORDER
     Route: 048
     Dates: start: 2002, end: 201206
  8. NEXIUM [Suspect]
     Indication: HIATUS HERNIA
     Route: 048
     Dates: start: 2002, end: 201206
  9. NEXIUM [Suspect]
     Indication: GASTROOESOPHAGEAL REFLUX DISEASE
     Route: 048
     Dates: start: 20100828
  10. NEXIUM [Suspect]
     Indication: GASTROOESOPHAGEAL REFLUX DISEASE
     Route: 048
     Dates: start: 20100828
  11. NEXIUM [Suspect]
     Indication: OESOPHAGEAL DISORDER
     Route: 048
     Dates: start: 20100828
  12. NEXIUM [Suspect]
     Indication: HIATUS HERNIA
     Route: 048
     Dates: start: 20100828
  13. ZANTAC [Concomitant]
     Dates: start: 1980
  14. TUMS [Concomitant]
     Dosage: WHEN NEEDED
  15. ROLAIDS [Concomitant]
  16. MORPHINE SULFATE [Concomitant]
  17. TOVIAZ [Concomitant]
  18. LEVOTHYROXINE [Concomitant]
  19. CYMBALTA [Concomitant]
  20. METOPROLOL [Concomitant]
  21. CYCLOBENZAPRINE [Concomitant]
  22. METOLAZONE [Concomitant]
  23. BONIVA [Concomitant]
  24. VITAMIN D [Concomitant]
     Dosage: 1000/1 WEEK
  25. BEANO [Concomitant]
     Dosage: 2-3 A DAY
  26. CRESTOR [Concomitant]
  27. ACIPHEX [Concomitant]
     Dates: start: 2013

REACTIONS (19)
  - Back pain [Unknown]
  - Neck pain [Unknown]
  - Shock [Unknown]
  - Osteoporosis [Unknown]
  - Foot fracture [Unknown]
  - Fall [Unknown]
  - Scoliosis [Unknown]
  - Joint injury [Unknown]
  - Hypoaesthesia [Unknown]
  - Dyspepsia [Unknown]
  - Calcium deficiency [Unknown]
  - Arthritis [Unknown]
  - Rheumatoid arthritis [Unknown]
  - Hypothyroidism [Unknown]
  - Vitamin D deficiency [Unknown]
  - Stress fracture [Unknown]
  - Osteopenia [Unknown]
  - Pain [Unknown]
  - Dizziness [Unknown]
